FAERS Safety Report 12406332 (Version 1)
Quarter: 2016Q2

REPORT INFORMATION
  Report Type: Spontaneous
  Country: SE (occurrence: SE)
  Receive Date: 20160526
  Receipt Date: 20160526
  Transmission Date: 20160815
  Serious: Yes (Other)
  Sender: FDA-Public Use
  Company Number: SE-WATSON-2016-10806

PATIENT

DRUGS (7)
  1. PHENYLEPHRINE [Concomitant]
     Active Substance: PHENYLEPHRINE\PHENYLEPHRINE HYDROCHLORIDE
     Indication: DELAYED DELIVERY
     Dosage: UNKNOWN
     Route: 064
  2. OXYTOCIN. [Concomitant]
     Active Substance: OXYTOCIN
     Indication: DELAYED DELIVERY
     Dosage: UNKNOWN
     Route: 064
  3. MISOPROSTOL. [Concomitant]
     Active Substance: MISOPROSTOL
     Indication: DELAYED DELIVERY
     Dosage: UNKNOWN
     Route: 064
  4. RINGER LACTATE                     /01126301/ [Concomitant]
     Indication: PRODUCT USED FOR UNKNOWN INDICATION
     Dosage: 1000 ML, TOTAL
     Route: 064
  5. ROPIVACAINE (UNKNOWN) [Suspect]
     Active Substance: ROPIVACAINE
     Indication: ANAESTHESIA
     Dosage: 3 + 12 ML ROPIVACAINE 7.5 MG/ML
     Route: 064
  6. FENTANYL (UNKNOWN) [Suspect]
     Active Substance: FENTANYL
     Indication: ANAESTHESIA
     Dosage: 50 MCG, TOTAL
     Route: 064
  7. DINOPROSTONE. [Concomitant]
     Active Substance: DINOPROSTONE
     Indication: DELAYED DELIVERY
     Dosage: UNKNOWN
     Route: 064

REACTIONS (2)
  - Apgar score low [Recovered/Resolved]
  - Foetal exposure during pregnancy [Recovered/Resolved]
